FAERS Safety Report 6693271-2 (Version None)
Quarter: 2010Q2

REPORT INFORMATION
  Report Type: 
  Country: None (occurrence: None)
  Receive Date: 20100422
  Receipt Date: 20100416
  Transmission Date: 20101027
  Serious: Yes (Death, Life-Threatening)
  Sender: FDA-Public Use
  Company Number: DE-MERCK-1001DEU00012

PATIENT
  Age: 61 Year
  Sex: Male
  Weight: 70 kg

DRUGS (33)
  1. PRIMAXIN [Suspect]
     Indication: SEPSIS
     Route: 042
     Dates: start: 20091028, end: 20091028
  2. FONDAPARINUX SODIUM [Suspect]
     Route: 058
     Dates: start: 20091020, end: 20091028
  3. ASPIRIN [Suspect]
     Route: 048
     Dates: start: 20091020, end: 20091028
  4. LANSOPRAZOLE [Suspect]
     Route: 048
     Dates: start: 20091020, end: 20091028
  5. CARBAMAZEPINE [Suspect]
     Route: 048
     Dates: start: 20091020, end: 20091028
  6. ZOCOR [Suspect]
     Route: 048
     Dates: start: 20091020, end: 20091027
  7. METOPROLOL SUCCINATE [Suspect]
     Dosage: 47.5 MG AND 23.25 MG
     Route: 048
     Dates: start: 20091020, end: 20091024
  8. LORAZEPAM [Suspect]
     Route: 048
     Dates: start: 20091020, end: 20091026
  9. LORAZEPAM [Suspect]
     Route: 048
     Dates: start: 20091027
  10. RAMIPRIL [Suspect]
     Route: 048
     Dates: start: 20091021, end: 20091024
  11. ZOPICLONE [Suspect]
     Route: 048
     Dates: start: 20091020, end: 20091026
  12. MELPERONE HYDROCHLORIDE [Suspect]
     Route: 048
     Dates: start: 20091020, end: 20091027
  13. CLONIDINE HYDROCHLORIDE [Suspect]
     Route: 048
     Dates: start: 20091020, end: 20091024
  14. TORSEMIDE [Suspect]
     Route: 048
     Dates: start: 20091020, end: 20091020
  15. TORSEMIDE [Suspect]
     Route: 048
     Dates: start: 20091021, end: 20091022
  16. TORSEMIDE [Suspect]
     Route: 048
     Dates: start: 20091023, end: 20091026
  17. TORSEMIDE [Suspect]
     Route: 048
     Dates: start: 20091027
  18. NOREPINEPHRINE HYDROCHLORIDE [Suspect]
     Dosage: 10 MG/50 ML NACL 0.9%
     Route: 042
     Dates: start: 20091025
  19. NOREPINEPHRINE HYDROCHLORIDE [Suspect]
     Dosage: 10 MG/50 ML NACL 0.9%
     Route: 042
     Dates: start: 20091028
  20. PIPERACILLIN SODIUM AND SULBACTAM SODIUM [Suspect]
     Route: 042
     Dates: start: 20091025, end: 20091027
  21. FLUNITRAZEPAM [Suspect]
     Route: 065
     Dates: start: 20091027, end: 20091028
  22. FUROSEMIDE [Suspect]
     Route: 042
     Dates: start: 20091028
  23. INSULIN HUMAN [Concomitant]
     Indication: DIABETES MELLITUS
     Route: 058
     Dates: start: 20091020, end: 20091020
  24. INSULIN HUMAN [Concomitant]
     Route: 058
     Dates: start: 20091021, end: 20091025
  25. INSULIN HUMAN [Concomitant]
     Route: 058
     Dates: start: 20091027, end: 20091028
  26. INSULIN HUMAN [Concomitant]
     Route: 058
     Dates: start: 20091026, end: 20091026
  27. INSULIN HUMAN [Concomitant]
     Route: 058
     Dates: start: 20091020, end: 20091021
  28. ACETYLCYSTEINE [Concomitant]
     Route: 048
     Dates: start: 20091020, end: 20091028
  29. POTASSIUM BICARBONATE AND POTASSIUM CITRATE [Concomitant]
     Route: 048
     Dates: start: 20091024
  30. POTASSIUM BICARBONATE AND POTASSIUM CITRATE [Concomitant]
     Route: 048
     Dates: start: 20091025
  31. POTASSIUM BICARBONATE AND POTASSIUM CITRATE [Concomitant]
     Route: 048
     Dates: start: 20091026
  32. POTASSIUM BICARBONATE AND POTASSIUM CITRATE [Concomitant]
     Route: 048
     Dates: start: 20091027
  33. POTASSIUM BICARBONATE AND POTASSIUM CITRATE [Concomitant]
     Route: 048
     Dates: start: 20091021, end: 20091023

REACTIONS (4)
  - RENAL FAILURE ACUTE [None]
  - RHABDOMYOLYSIS [None]
  - SEPTIC SHOCK [None]
  - URINE COLOUR ABNORMAL [None]
